FAERS Safety Report 7329325-7 (Version None)
Quarter: 2011Q1

REPORT INFORMATION
  Report Type: 
  Country: None (occurrence: None)
  Receive Date: 20110303
  Receipt Date: 20110221
  Transmission Date: 20110831
  Serious: Yes (Other)
  Sender: FDA-Public Use
  Company Number: CA-MERCK-1011USA01760

PATIENT
  Age: 74 Year
  Sex: Male

DRUGS (3)
  1. SINGULAIR [Suspect]
     Indication: ASTHMA
     Route: 048
     Dates: start: 19970101, end: 20101113
  2. INFLUENZA VIRUS A VACCINE (UNSPECIFIED) (H1N1) [Suspect]
     Indication: PROPHYLAXIS
     Route: 065
     Dates: start: 20091101
  3. LOSEC (OMEPRAZOLE) [Concomitant]
     Route: 065

REACTIONS (9)
  - PARALYSIS [None]
  - BALANCE DISORDER [None]
  - TREMOR [None]
  - HEADACHE [None]
  - FATIGUE [None]
  - ROAD TRAFFIC ACCIDENT [None]
  - MENTAL IMPAIRMENT [None]
  - DISTURBANCE IN ATTENTION [None]
  - VACCINATION SITE PRURITUS [None]
